FAERS Safety Report 6998698-7 (Version None)
Quarter: 2010Q3

REPORT INFORMATION
  Report Type: 
  Country: None (occurrence: None)
  Receive Date: 20100920
  Receipt Date: 20100203
  Transmission Date: 20110219
  Serious: Yes (Hospitalization)
  Sender: FDA-Public Use
  Company Number: US-ASTRAZENECA-2009UW20742

PATIENT
  Age: 464 Month
  Sex: Male
  Weight: 79.4 kg

DRUGS (17)
  1. SEROQUEL [Suspect]
     Indication: BIPOLAR DISORDER
     Route: 048
     Dates: start: 20070201, end: 20070901
  2. SEROQUEL [Suspect]
     Indication: SCHIZOPHRENIA
     Route: 048
     Dates: start: 20070201, end: 20070901
  3. GABAPENTIN [Concomitant]
     Indication: SCHIZOPHRENIA
     Dates: start: 20070101
  4. LAMICTAL [Concomitant]
     Indication: SCHIZOPHRENIA
     Dates: start: 20070101
  5. AMANTADINE [Concomitant]
     Indication: SCHIZOPHRENIA
     Dates: start: 20080101
  6. BENZTROPINE MESYLATE [Concomitant]
     Indication: SCHIZOPHRENIA
  7. ABILIFY [Concomitant]
     Indication: BIPOLAR DISORDER
     Dates: start: 20070701
  8. FLUOXETINE [Concomitant]
     Indication: DEPRESSION
     Dates: start: 20070701
  9. ZOLOFT [Concomitant]
     Indication: DEPRESSION
     Dates: start: 20070701
  10. MIRTAZAPINE [Concomitant]
     Indication: ANXIETY
     Dates: start: 20070101
  11. METFORMIN HCL [Concomitant]
     Indication: TYPE 2 DIABETES MELLITUS
     Dates: start: 20070901
  12. GEODON [Concomitant]
     Dates: start: 20080101, end: 20080101
  13. HALDOL [Concomitant]
     Dates: start: 20080101, end: 20090101
  14. RISPERDAL [Concomitant]
     Dates: start: 20080101, end: 20080101
  15. THORAZINE [Concomitant]
     Indication: SCHIZOPHRENIA
     Dates: start: 20070701
  16. THORAZINE [Concomitant]
     Dates: start: 20090101
  17. ZYPREXA [Concomitant]

REACTIONS (4)
  - OBESITY [None]
  - PANCREATITIS [None]
  - TYPE 2 DIABETES MELLITUS [None]
  - WEIGHT INCREASED [None]
